FAERS Safety Report 5038340-8 (Version None)
Quarter: 2006Q2

REPORT INFORMATION
  Report Type: 
  Country: None (occurrence: None)
  Receive Date: 20060601
  Receipt Date: 20060118
  Transmission Date: 20061013
  Serious: No
  Sender: FDA-Public Use
  Company Number: 2006PV007533

PATIENT
  Age: 32 Year
  Sex: Female
  Weight: 94.3482 kg

DRUGS (9)
  1. BYETTA [Suspect]
     Indication: INSULIN RESISTANCE
     Dosage: SEE IMAGE
     Route: 058
     Dates: start: 20051222, end: 20060110
  2. BYETTA [Suspect]
     Indication: POLYCYSTIC OVARIES
     Dosage: SEE IMAGE
     Route: 058
     Dates: start: 20051222, end: 20060110
  3. BYETTA [Suspect]
     Indication: INSULIN RESISTANCE
     Dosage: SEE IMAGE
     Route: 058
     Dates: start: 20060111, end: 20060117
  4. BYETTA [Suspect]
     Indication: POLYCYSTIC OVARIES
     Dosage: SEE IMAGE
     Route: 058
     Dates: start: 20060111, end: 20060117
  5. ALLEGRA [Concomitant]
  6. RHINOCORT [Concomitant]
  7. SINGULAIR [Concomitant]
  8. NEXIUM [Concomitant]
  9. METFORMIN [Concomitant]

REACTIONS (4)
  - CONDITION AGGRAVATED [None]
  - DECREASED APPETITE [None]
  - INSOMNIA [None]
  - NASAL CONGESTION [None]
